FAERS Safety Report 8933506 (Version 1)
Quarter: 2012Q4

REPORT INFORMATION
  Report Type: Report from Study
  Country: FR (occurrence: FR)
  Receive Date: 20121129
  Receipt Date: 20121129
  Transmission Date: 20130627
  Serious: Yes (Hospitalization)
  Sender: FDA-Public Use
  Company Number: FR-ROCHE-1161096

PATIENT
  Age: 57 Year
  Sex: Female

DRUGS (12)
  1. IPILIMUMAB [Suspect]
     Indication: MALIGNANT MELANOMA
     Dosage: cyclical doses, The patient received her last dose of ipilinumab on 17/Aug/2012
     Route: 042
     Dates: start: 20120614
  2. VEMURAFENIB [Suspect]
     Indication: MALIGNANT MELANOMA
     Route: 065
  3. PARACETAMOL [Concomitant]
     Route: 065
     Dates: start: 20120704
  4. SERTRALINE HCL [Concomitant]
     Route: 065
     Dates: start: 201109
  5. PRAZEPAM [Concomitant]
     Route: 065
     Dates: start: 201109
  6. LORMETAZEPAM [Concomitant]
     Route: 065
     Dates: start: 201109
  7. CANDESARTAN CILEXETIL [Concomitant]
     Route: 065
     Dates: start: 2000
  8. ATORVASTATIN [Concomitant]
     Route: 065
     Dates: start: 2000
  9. AMOXICILLINE [Concomitant]
     Route: 065
     Dates: start: 20120914, end: 20120921
  10. LOPERAMIDE HYDROCHLORIDE [Concomitant]
     Route: 065
     Dates: start: 20120930, end: 20121005
  11. PHLOROGLUCINOL [Concomitant]
     Route: 065
     Dates: start: 20120930, end: 20121005
  12. PREDNISONE [Concomitant]
     Route: 048

REACTIONS (3)
  - Colitis [Unknown]
  - Diarrhoea [Recovered/Resolved]
  - Toxic skin eruption [Not Recovered/Not Resolved]
